FAERS Safety Report 6324787-6 (Version None)
Quarter: 2009Q3

REPORT INFORMATION
  Report Type: 
  Country: None (occurrence: None)
  Receive Date: 20090824
  Receipt Date: 20090505
  Transmission Date: 20100115
  Serious: No
  Sender: FDA-Public Use
  Company Number: US-ABBOTT-09P-163-0571500-00

PATIENT
  Sex: Female

DRUGS (19)
  1. NIASPAN [Suspect]
     Indication: HYPERCHOLESTEROLAEMIA
     Dosage: DAILY AT BEDTIME
     Route: 048
     Dates: start: 20090429, end: 20090429
  2. PRILOSEC [Concomitant]
     Indication: DRUG USE FOR UNKNOWN INDICATION
     Dosage: DAILY IN AM
     Route: 048
  3. BENTYL [Concomitant]
     Indication: DRUG USE FOR UNKNOWN INDICATION
     Dosage: DAILY IN AM
     Route: 048
  4. REGLAN [Concomitant]
     Indication: DRUG USE FOR UNKNOWN INDICATION
     Dosage: DAILY IN AM
     Route: 048
  5. ACCUPRIL [Concomitant]
     Indication: DRUG USE FOR UNKNOWN INDICATION
  6. DIOZIDE [Concomitant]
     Indication: DRUG USE FOR UNKNOWN INDICATION
  7. LIBRIUM [Concomitant]
     Indication: DRUG USE FOR UNKNOWN INDICATION
  8. ASPIRIN [Concomitant]
     Indication: DRUG USE FOR UNKNOWN INDICATION
     Dosage: DAILY
     Route: 048
  9. ANTIVERT [Concomitant]
     Indication: DRUG USE FOR UNKNOWN INDICATION
  10. KEFLEX [Concomitant]
     Indication: DRUG USE FOR UNKNOWN INDICATION
  11. MUCINEX [Concomitant]
     Indication: DRUG USE FOR UNKNOWN INDICATION
  12. AZO-STANDARD [Concomitant]
     Indication: DRUG USE FOR UNKNOWN INDICATION
  13. CRANBERRY [Concomitant]
     Indication: DRUG USE FOR UNKNOWN INDICATION
  14. SINGULAIR [Concomitant]
     Indication: DRUG USE FOR UNKNOWN INDICATION
  15. LODRANE 24 [Concomitant]
     Indication: DRUG USE FOR UNKNOWN INDICATION
  16. ULTRAM [Concomitant]
     Indication: DRUG USE FOR UNKNOWN INDICATION
     Dosage: DAILY AT BEDTIME
     Route: 048
  17. TYLENOL (CAPLET) [Concomitant]
     Indication: DRUG USE FOR UNKNOWN INDICATION
  18. ADVAIR HFA [Concomitant]
     Indication: DRUG USE FOR UNKNOWN INDICATION
  19. PROAIR HFA [Concomitant]
     Indication: DRUG USE FOR UNKNOWN INDICATION
     Dosage: AS REQUIRED

REACTIONS (1)
  - FLUSHING [None]
